FAERS Safety Report 9908525 (Version 1)
Quarter: 2014Q1

REPORT INFORMATION
  Report Type: Spontaneous
  Country: US (occurrence: None)
  Receive Date: 20140214
  Receipt Date: 20140214
  Transmission Date: 20141002
  Serious: Yes (Hospitalization)
  Sender: FDA-Public Use
  Company Number: None

PATIENT
  Age: 88 Year
  Sex: Male
  Weight: 72.7 kg

DRUGS (15)
  1. COUMADIN [Suspect]
     Indication: ATRIAL FIBRILLATION
     Dosage: CHRONIC?15MG QPM PO
  2. SEPTRA DS [Suspect]
     Indication: URINARY TRACT INFECTION
     Dosage: RECENT
     Route: 048
  3. VIT C [Concomitant]
  4. ATENOLOL [Concomitant]
  5. FINASTERIDE [Concomitant]
  6. VITAMIN E [Concomitant]
  7. PROTONIX [Concomitant]
  8. LASIX [Concomitant]
  9. MAGNESIUM OXIDE [Concomitant]
  10. PRAVASTATIN [Concomitant]
  11. RAMIPRIL [Concomitant]
  12. ALDACTONE [Concomitant]
  13. VIT B [Concomitant]
  14. MVI [Concomitant]
  15. GLIMEPIRIDE [Concomitant]

REACTIONS (5)
  - Hypovolaemic shock [None]
  - Shock haemorrhagic [None]
  - Anaemia [None]
  - Renal failure acute [None]
  - Upper gastrointestinal haemorrhage [None]
